FAERS Safety Report 8213526-X (Version None)
Quarter: 2012Q1

REPORT INFORMATION
  Report Type: 
  Country: None (occurrence: None)
  Receive Date: 20120315
  Receipt Date: 20120305
  Transmission Date: 20120608
  Serious: Yes (Congenital Anomaly, Other)
  Sender: FDA-Public Use
  Company Number: US-RB-037997-12

PATIENT
  Sex: Male

DRUGS (5)
  1. SUBUTEX [Suspect]
     Indication: PRODUCT USED FOR UNKNOWN INDICATION
     Route: 064
     Dates: end: 20120228
  2. HUMALOG [Concomitant]
     Indication: PRODUCT USED FOR UNKNOWN INDICATION
     Dosage: UNKNOWN DOSE
     Route: 064
  3. HUMULIN PEN [Concomitant]
     Indication: PRODUCT USED FOR UNKNOWN INDICATION
     Dosage: UNKNOWN DOSE
     Route: 064
  4. NEEVO DHA [Concomitant]
     Indication: PREGNANCY
     Route: 064
  5. ZOLPIDEM [Concomitant]
     Indication: PRODUCT USED FOR UNKNOWN INDICATION
     Route: 064

REACTIONS (3)
  - FOETAL EXPOSURE DURING PREGNANCY [None]
  - MATERNAL DRUGS AFFECTING FOETUS [None]
  - CONGENITAL HEPATOBILIARY ANOMALY [None]
